FAERS Safety Report 6178491-8 (Version None)
Quarter: 2009Q2

REPORT INFORMATION
  Report Type: 
  Country: None (occurrence: None)
  Receive Date: 20090430
  Receipt Date: 20090420
  Transmission Date: 20091009
  Serious: Yes (Other)
  Sender: FDA-Public Use
  Company Number: CLOF-1000532

PATIENT

DRUGS (4)
  1. EVOLTRA (CLOFARABINE) SOLUTION FOR INFUSION [Suspect]
     Indication: ACUTE MYELOID LEUKAEMIA
     Dosage: 40 MG/M2, QDX5, INTRAVENOUS
     Route: 042
  2. CYTARABINE [Suspect]
     Indication: ACUTE MYELOID LEUKAEMIA
     Dosage: 1000 MG/M2, QDX5, INTRAVENOUS
     Route: 042
  3. AMOXICILLIN [Concomitant]
  4. LEVOFLOXACIN [Concomitant]

REACTIONS (1)
  - NERVOUS SYSTEM DISORDER [None]
